FAERS Safety Report 22295995 (Version 3)
Quarter: 2023Q2

REPORT INFORMATION
  Report Type: Spontaneous
  Country: US (occurrence: US)
  Receive Date: 20230508
  Receipt Date: 20230630
  Transmission Date: 20230722
  Serious: Yes (Other)
  Sender: FDA-Public Use
  Company Number: US-PFIZER INC-202300181133

PATIENT
  Age: 70 Year
  Sex: Female
  Weight: 74.39 kg

DRUGS (8)
  1. IBRANCE [Suspect]
     Active Substance: PALBOCICLIB
     Dosage: 125 MG
     Dates: start: 202301
  2. IBRANCE [Suspect]
     Active Substance: PALBOCICLIB
     Dosage: 100 MG
  3. IBRANCE [Suspect]
     Active Substance: PALBOCICLIB
     Dosage: 75 MG, CYCLIC,(TAKE ONE CAPSULE BY MOUTH IN THE MORNING FOR 21 DAYS)
     Route: 048
  4. HERCEPTIN [Suspect]
     Active Substance: TRASTUZUMAB
     Dosage: UNK
  5. PERJETA [Suspect]
     Active Substance: PERTUZUMAB
     Dosage: UNK
  6. LABETALOL [Concomitant]
     Active Substance: LABETALOL\LABETALOL HYDROCHLORIDE
     Dosage: UNK
  7. AMLODIPINE [Concomitant]
     Active Substance: AMLODIPINE BESYLATE
     Dosage: UNK
  8. LETROZOLE [Concomitant]
     Active Substance: LETROZOLE
     Dosage: UNK

REACTIONS (4)
  - Device related infection [Unknown]
  - Nausea [Unknown]
  - Diarrhoea [Unknown]
  - Gastroenteritis viral [Unknown]
